FAERS Safety Report 7415269-9 (Version None)
Quarter: 2011Q2

REPORT INFORMATION
  Report Type: 
  Country: None (occurrence: None)
  Receive Date: 20110414
  Receipt Date: 20110412
  Transmission Date: 20111010
  Serious: Yes (Life-Threatening, Hospitalization, Other)
  Sender: FDA-Public Use
  Company Number: PHHY2011US30206

PATIENT
  Age: 53 Year
  Sex: Female

DRUGS (7)
  1. ATENOLOL [Concomitant]
  2. LYRICA [Concomitant]
  3. RECLAST [Suspect]
     Dosage: 5 MG, UNK
     Route: 042
     Dates: start: 20101220
  4. XANAX [Concomitant]
  5. HYDROCODONE [Concomitant]
  6. TOPAMAX [Concomitant]
  7. MIRAPEX [Concomitant]

REACTIONS (5)
  - FEELING ABNORMAL [None]
  - HEPATIC FUNCTION ABNORMAL [None]
  - RENAL FAILURE ACUTE [None]
  - DISABILITY [None]
  - PNEUMONIA VIRAL [None]
